FAERS Safety Report 6547439-6 (Version None)
Quarter: 2010Q1

REPORT INFORMATION
  Report Type: 
  Country: None (occurrence: None)
  Receive Date: 20100122
  Receipt Date: 20100120
  Transmission Date: 20100710
  Serious: Yes (Death, Hospitalization, Other)
  Sender: FDA-Public Use
  Company Number: PHEH2009US15081

PATIENT
  Sex: Female

DRUGS (17)
  1. EXJADE [Suspect]
     Dosage: 1000 MG, QD
     Route: 048
     Dates: end: 20090820
  2. OXYCONTIN [Concomitant]
     Indication: PAIN
     Dosage: 10 MG, BID
     Route: 048
  3. LOMOTIL [Concomitant]
     Indication: DIARRHOEA
     Dosage: 0.025MG/2.5MG, ONE TABLET AS NEEDED
     Route: 048
  4. POTASSIUM CHLORIDE [Concomitant]
     Dosage: 40 MEQ, TID
     Route: 048
  5. CALCITRIOL [Concomitant]
     Indication: SUPPLEMENTATION THERAPY
     Dosage: 0.25 MCG, QD
     Route: 048
  6. LYRICA [Concomitant]
     Indication: CONVULSION
     Dosage: 75 MG, BID
     Route: 048
  7. BACTRIM [Concomitant]
     Indication: BACTERIAL INFECTION
     Dosage: 800MG/160MG, BID ON MONDAYS AND THURSDAYS
  8. PREDNISONE [Concomitant]
     Indication: PROPHYLAXIS AGAINST TRANSPLANT REJECTION
     Dosage: 20 MG, BID
     Route: 048
  9. URSODIOL [Concomitant]
     Indication: CHOLELITHIASIS
     Dosage: 300 MG, TID
     Route: 048
  10. EFFEXOR XR [Concomitant]
     Indication: DEPRESSION
     Dosage: 75 MG, QD
  11. EFFEXOR XR [Concomitant]
     Dosage: DOSE INCREASED
     Dates: start: 20090901
  12. LEVOTHYROXINE SODIUM [Concomitant]
     Indication: THYROID HORMONE REPLACEMENT THERAPY
     Dosage: 25 MCG, QD
     Route: 048
  13. ACYCLOVIR [Concomitant]
     Indication: VIRAL INFECTION
     Dosage: 800 MG, BID2SDO
  14. DIFLUCAN [Concomitant]
     Indication: FUNGAL INFECTION
     Dosage: 400 MG, QD
     Route: 048
  15. NEXIUM [Concomitant]
     Indication: GASTRIC ULCER
     Dosage: 40 MG, QD
     Route: 048
  16. NEXIUM [Concomitant]
     Indication: DYSPEPSIA
  17. BUDESONIDE [Concomitant]
     Dosage: UNK
     Dates: end: 20090820

REACTIONS (36)
  - ACUTE GRAFT VERSUS HOST DISEASE [None]
  - AMMONIA INCREASED [None]
  - ASTHENIA [None]
  - BACTERAEMIA [None]
  - CARDIAC ARREST [None]
  - CHOLECYSTITIS ACUTE [None]
  - CLOSTRIDIUM DIFFICILE COLITIS [None]
  - CONFUSIONAL STATE [None]
  - CONVULSION [None]
  - DECREASED APPETITE [None]
  - DEPRESSION [None]
  - DIZZINESS [None]
  - DRUG HYPERSENSITIVITY [None]
  - ENTEROCOCCAL BACTERAEMIA [None]
  - ENTEROCOCCAL INFECTION [None]
  - ESCHERICHIA BACTERAEMIA [None]
  - ESCHERICHIA URINARY TRACT INFECTION [None]
  - FAILURE TO THRIVE [None]
  - FREQUENT BOWEL MOVEMENTS [None]
  - GASTROINTESTINAL HAEMORRHAGE [None]
  - HAEMOLYSIS [None]
  - HYPERGLYCAEMIA [None]
  - HYPOTENSION [None]
  - JAUNDICE [None]
  - LETHARGY [None]
  - LIVER FUNCTION TEST ABNORMAL [None]
  - MENTAL STATUS CHANGES [None]
  - MYALGIA [None]
  - PAIN IN EXTREMITY [None]
  - PULSE ABSENT [None]
  - PYREXIA [None]
  - SMALL INTESTINAL OBSTRUCTION [None]
  - SOMNOLENCE [None]
  - SYNCOPE [None]
  - TRANSPLANT [None]
  - UNRESPONSIVE TO STIMULI [None]
